FAERS Safety Report 4592706-9 (Version None)
Quarter: 2005Q1

REPORT INFORMATION
  Report Type: 
  Country: None (occurrence: None)
  Receive Date: 20050222
  Receipt Date: 20050209
  Transmission Date: 20050727
  Serious: Yes (Other)
  Sender: FDA-Public Use
  Company Number: 2005029195

PATIENT
  Age: 51 Year
  Sex: Male
  Weight: 120 kg

DRUGS (6)
  1. NAPROXEN [Suspect]
     Indication: ARTHRITIS
     Dosage: 500 MG (500 MG, 1 IN 1 D), ORAL
     Route: 048
     Dates: start: 20041231, end: 20050107
  2. CELECOXIB [Suspect]
     Indication: ILL-DEFINED DISORDER
     Dosage: UNKNOWN
     Route: 065
     Dates: end: 20041201
  3. PROCHLORPERAZINE MALEATE [Concomitant]
  4. CITALOPRAM                      (CITALOPRAM) [Concomitant]
  5. TELMISARTAN                 (TELMISARTAN) [Concomitant]
  6. VERAPAMIL [Concomitant]

REACTIONS (1)
  - ANGINA PECTORIS [None]
